FAERS Safety Report 13778520 (Version 4)
Quarter: 2018Q2

REPORT INFORMATION
  Report Type: Report from Study
  Country: BR (occurrence: BR)
  Receive Date: 20170721
  Receipt Date: 20180608
  Transmission Date: 20180711
  Serious: Yes (Hospitalization, Other)
  Sender: FDA-Public Use
  Company Number: BR-ROCHE-1964842

PATIENT
  Sex: Female
  Weight: 59.5 kg

DRUGS (6)
  1. ALENIA (BRAZIL) [Concomitant]
     Active Substance: BUDESONIDE\FORMOTEROL FUMARATE
     Indication: PRODUCT USED FOR UNKNOWN INDICATION
     Route: 065
  2. XOLAIR [Suspect]
     Active Substance: OMALIZUMAB
     Route: 058
     Dates: start: 20170411
  3. XOLAIR [Suspect]
     Active Substance: OMALIZUMAB
     Indication: ASTHMA
     Dosage: (EVERY 15 DAYS SHE USES TWO AMPOULES OF 150MG)
     Route: 058
     Dates: start: 2012
  4. XOLAIR [Suspect]
     Active Substance: OMALIZUMAB
     Route: 058
     Dates: start: 201705
  5. XOLAIR [Suspect]
     Active Substance: OMALIZUMAB
     Route: 058
     Dates: start: 20171204
  6. MIFLONIDE [Suspect]
     Active Substance: BUDESONIDE
     Indication: PRODUCT USED FOR UNKNOWN INDICATION
     Route: 065
     Dates: start: 2012

REACTIONS (20)
  - Quality of life decreased [Unknown]
  - Weight decreased [Unknown]
  - Spinal disorder [Unknown]
  - Body height decreased [Unknown]
  - Nausea [Unknown]
  - Cerebrovascular accident [Unknown]
  - Fatigue [Unknown]
  - Pneumonia [Unknown]
  - Asthmatic crisis [Recovering/Resolving]
  - Decreased immune responsiveness [Unknown]
  - Depression [Not Recovered/Not Resolved]
  - Malaise [Recovering/Resolving]
  - Memory impairment [Unknown]
  - Speech disorder [Unknown]
  - Concomitant disease aggravated [Unknown]
  - Decreased appetite [Unknown]
  - Asthma [Recovering/Resolving]
  - Dyspnoea [Unknown]
  - Sensitivity to weather change [Unknown]
  - Temperature intolerance [Unknown]
